FAERS Safety Report 20473118 (Version 2)
Quarter: 2022Q1

REPORT INFORMATION
  Report Type: Spontaneous
  Country: FR (occurrence: FR)
  Receive Date: 20220215
  Receipt Date: 20220317
  Transmission Date: 20220423
  Serious: No
  Sender: FDA-Public Use
  Company Number: FR-AMGEN-FRASP2022024160

PATIENT

DRUGS (2)
  1. NEUPOGEN [Suspect]
     Active Substance: FILGRASTIM
     Indication: Product used for unknown indication
     Dosage: 30 MU, UNK
     Route: 065
  2. NEUPOGEN [Suspect]
     Active Substance: FILGRASTIM
     Dosage: 30 MU, UNK
     Route: 065

REACTIONS (1)
  - Device issue [Unknown]

NARRATIVE: CASE EVENT DATE: 20220207
